FAERS Safety Report 8156172-9 (Version None)
Quarter: 2012Q1

REPORT INFORMATION
  Report Type: 
  Country: None (occurrence: None)
  Receive Date: 20120222
  Receipt Date: 20120210
  Transmission Date: 20120608
  Serious: No
  Sender: FDA-Public Use
  Company Number: US-JNJFOC-20120103213

PATIENT
  Sex: Female
  Weight: 118.84 kg

DRUGS (8)
  1. CLONAZEPAM [Concomitant]
     Indication: BIPOLAR DISORDER
     Route: 048
     Dates: start: 20111006
  2. HYDROXYZINE [Concomitant]
     Indication: INSOMNIA
     Route: 048
     Dates: start: 20111122
  3. HYDROXYZINE [Concomitant]
     Indication: ANXIETY
     Route: 048
     Dates: start: 20111122
  4. TOPAMAX [Concomitant]
     Indication: ALCOHOLISM
     Dosage: 100MG IN AM AND 150 MG HS
     Route: 048
     Dates: start: 20101215
  5. TOPAMAX [Concomitant]
     Indication: BIPOLAR DISORDER
     Dosage: 100MG IN AM AND 150 MG HS
     Route: 048
     Dates: start: 20101215
  6. INVEGA SUSTENNA [Suspect]
     Indication: BIPOLAR DISORDER
     Route: 030
     Dates: start: 20110119
  7. TOPAMAX [Concomitant]
     Indication: AFFECTIVE DISORDER
     Dosage: 100MG IN AM AND 150 MG HS
     Route: 048
     Dates: start: 20101215
  8. ZOLPIDEM [Concomitant]
     Indication: INSOMNIA
     Route: 048
     Dates: start: 20111122

REACTIONS (5)
  - IRRITABILITY [None]
  - HYPOMANIA [None]
  - INSOMNIA [None]
  - MOOD SWINGS [None]
  - TACHYPHRENIA [None]
